FAERS Safety Report 10411812 (Version 1)
Quarter: 2014Q2

REPORT INFORMATION
  Report Type: Spontaneous
  Country: US (occurrence: None)
  Receive Date: 20140604
  Receipt Date: 20140604
  Transmission Date: 20141212
  Serious: No
  Sender: FDA-Public Use
  Company Number: 163-POMAL-14043013

PATIENT
  Age: 57 Year
  Sex: Male

DRUGS (4)
  1. POMALYST (POMALIDOMIDE) (CAPSULES) [Suspect]
     Indication: PLASMA CELL MYELOMA
     Route: 048
     Dates: start: 20130320
  2. DEXAMETHASONE [Concomitant]
  3. HYDROMORPHONE HCL [Concomitant]
  4. OXYCODONE/ACETAMINOPHEN (OXYCOCET) [Concomitant]

REACTIONS (2)
  - Laceration [None]
  - Dyspnoea [None]
